FAERS Safety Report 13513178 (Version 1)
Quarter: 2017Q2

REPORT INFORMATION
  Report Type: Report from Study
  Country: PE (occurrence: PE)
  Receive Date: 20170504
  Receipt Date: 20170504
  Transmission Date: 20170830
  Serious: Yes (Disabling)
  Sender: FDA-Public Use
  Company Number: PE-ROCHE-1930568

PATIENT
  Age: 49 Year
  Sex: Female

DRUGS (1)
  1. AVASTIN [Suspect]
     Active Substance: BEVACIZUMAB
     Indication: COLORECTAL CANCER
     Dosage: LAST DOSE ON 21/APR/2017
     Route: 042
     Dates: start: 20170214

REACTIONS (2)
  - Underweight [Unknown]
  - Immobile [Unknown]
